FAERS Safety Report 4920408-5 (Version None)
Quarter: 2006Q1

REPORT INFORMATION
  Report Type: 
  Country: None (occurrence: None)
  Receive Date: 20060223
  Receipt Date: 20051003
  Transmission Date: 20060701
  Serious: Yes (Death)
  Sender: FDA-Public Use
  Company Number: US-MERCK-0510USA02786

PATIENT
  Age: 65 Year
  Sex: Female
  Weight: 61 kg

DRUGS (1)
  1. VIOXX [Suspect]
     Indication: ARTHRITIS
     Route: 048
     Dates: end: 20030915

REACTIONS (3)
  - AORTIC VALVE DISEASE [None]
  - CARDIAC ARREST [None]
  - CORONARY ARTERY INSUFFICIENCY [None]
